FAERS Safety Report 6431643-1 (Version None)
Quarter: 2009Q4

REPORT INFORMATION
  Report Type: 
  Country: None (occurrence: None)
  Receive Date: 20091103
  Receipt Date: 20091019
  Transmission Date: 20100525
  Serious: Yes (Hospitalization)
  Sender: FDA-Public Use
  Company Number: 02100-JPN-07-0725

PATIENT
  Age: 63 Year
  Sex: Male

DRUGS (13)
  1. PLETAL [Suspect]
     Indication: CEREBRAL INFARCTION
     Dosage: 100 MG, BID ORAL
     Route: 048
     Dates: start: 20050121, end: 20071025
  2. PLETAL [Suspect]
     Indication: CEREBRAL INFARCTION
     Dosage: 100 MG, BID ORAL
     Route: 048
     Dates: start: 20071121, end: 20071217
  3. METHYCOBAL (MECOBALAMIN) TABLET [Concomitant]
  4. SELBEX (TEPRENONE) CAPSULE [Concomitant]
  5. AMOBAN (ZOPICLONE) TABLET [Concomitant]
  6. PRAVASTATIN SODIUM [Concomitant]
  7. CEPHADOL (DIFENIDOL HYDROCHLORIDE) TABLET [Concomitant]
  8. GASTER D (FAMOTIDINE) TABLET [Concomitant]
  9. FLIVAS (NAFTOPIDIL) TABLET [Concomitant]
  10. UBRETID (DISTIGMINE BROMIDE) TABLET [Concomitant]
  11. LOSARTAN POTASSIUM [Concomitant]
  12. PARIET (SODIUM RABEPRAZOLE) TABLET [Concomitant]
  13. SODIUM ALGINATE CALCIUM GLUCONATE INJ [Concomitant]

REACTIONS (2)
  - GASTRITIS [None]
  - OESOPHAGEAL CARCINOMA [None]
